FAERS Safety Report 10664030 (Version 1)
Quarter: 2014Q4

REPORT INFORMATION
  Report Type: Spontaneous
  Country: US (occurrence: US)
  Receive Date: 20141219
  Receipt Date: 20141219
  Transmission Date: 20150529
  Serious: Yes (Hospitalization)
  Sender: FDA-Public Use
  Company Number: US-GILEAD-2014-0128032

PATIENT
  Age: 56 Year
  Sex: Female

DRUGS (1)
  1. LETAIRIS [Suspect]
     Active Substance: AMBRISENTAN
     Indication: PRODUCT USED FOR UNKNOWN INDICATION
     Dosage: 5 MG, UNK
     Route: 065

REACTIONS (8)
  - Dyspnoea exertional [Unknown]
  - Drug intolerance [Unknown]
  - Chest pain [Unknown]
  - Dyspnoea [Unknown]
  - Oedema peripheral [Unknown]
  - Obesity [Unknown]
  - Oedema [Unknown]
  - Swelling [Unknown]
